FAERS Safety Report 11172719 (Version 1)
Quarter: 2015Q2

REPORT INFORMATION
  Report Type: Report from Study
  Country: US (occurrence: US)
  Receive Date: 20150608
  Receipt Date: 20150608
  Transmission Date: 20150821
  Serious: No
  Sender: FDA-Public Use
  Company Number: US-AMGEN-USASL2015005698

PATIENT
  Age: 72 Year
  Sex: Female
  Weight: 73.46 kg

DRUGS (22)
  1. BIOTIN [Concomitant]
     Active Substance: BIOTIN
     Dosage: 5 MG, 1 TABLET ONCE A DAY
  2. CALCIUM CARBONATE. [Concomitant]
     Active Substance: CALCIUM CARBONATE
     Dosage: 600 MG, (1,500 MG), 1 TABLET TWICE A DAY
  3. GLIMEPIRIDE. [Concomitant]
     Active Substance: GLIMEPIRIDE
     Dosage: 4 MG, 1 TABLET TWICE A DAY
  4. OMEPRAZOLE. [Concomitant]
     Active Substance: OMEPRAZOLE
     Dosage: 20 MG, 1 DELAYED RELEASE CAPSULE TWICE A DAY
  5. BETA CAROTENE [Concomitant]
     Dosage: 25000 UNIT, 1 CAPSULE ONCE A DAY
  6. CRESTOR [Concomitant]
     Active Substance: ROSUVASTATIN CALCIUM
     Dosage: 20 MG, 1 TABLET ONCE A DAY
  7. FERROUS SULFATE [Concomitant]
     Active Substance: FERROUS SULFATE\FERROUS SULFATE, DRIED
     Dosage: 325 MG, (65 MG IRON), 1 TABLET THREE TIMES A DAY
  8. EPOGEN [Suspect]
     Active Substance: ERYTHROPOIETIN
     Indication: PRODUCT USED FOR UNKNOWN INDICATION
     Dosage: UNK
     Route: 065
  9. LISINOPRIL. [Concomitant]
     Active Substance: LISINOPRIL
     Dosage: 10 MG, 1 TABLET ONCE A DAY
  10. OXYBUTYNIN CHLORIDE. [Concomitant]
     Active Substance: OXYBUTYNIN CHLORIDE
     Indication: URINARY INCONTINENCE
     Dosage: 5 MG, 1 TABLET ONCE A DAY
  11. SINGULAIR [Concomitant]
     Active Substance: MONTELUKAST SODIUM
     Dosage: 10 MG, 1 TABLET ONCE A DAY
  12. LASIX [Concomitant]
     Active Substance: FUROSEMIDE
     Dosage: 1/2 OF PILL IN EVENING
  13. ASPIRIN                            /00002701/ [Concomitant]
     Active Substance: ASPIRIN
     Dosage: 81 MG, ONCE A DAY
  14. OMEGA 3 PLUS [Concomitant]
     Dosage: 2 CAPSULE, ONCE A DAY
  15. POTASSIUM GLUCONATE [Concomitant]
     Active Substance: POTASSIUM GLUCONATE
     Dosage: 595 (99) MG , 1 TABLET,ONCE A DAY
  16. SELENIUM [Concomitant]
     Active Substance: SELENIUM
     Dosage: 200 MCG, 1 CAPSULE ONCE A DAY
  17. VITAMIN C [Concomitant]
     Active Substance: ASCORBIC ACID
     Dosage: 500 MG, 1 TABLET ONCE A DAY
  18. COREG [Concomitant]
     Active Substance: CARVEDILOL
     Dosage: 25 MG, 1 TABLET TWICE A DAY
  19. MAGNESIUM [Concomitant]
     Active Substance: MAGNESIUM
     Dosage: 250 MG, 2 TABLETS TWICE A DAY
  20. VITAMIN B12 [Concomitant]
     Active Substance: CYANOCOBALAMIN
     Dosage: 500 MCG, 1 TABLET ONCE A DAY
  21. VITAMIN D3 [Concomitant]
     Active Substance: CHOLECALCIFEROL
     Dosage: 2000 UNIT, 1 TABLET TWICE A DAY
  22. ZINC [Concomitant]
     Active Substance: ZINC\ZINC CHLORIDE
     Dosage: 50 MG, ONCE A DAY

REACTIONS (5)
  - Urinary incontinence [Unknown]
  - Renal disorder [Unknown]
  - Fatigue [Unknown]
  - Dizziness [Unknown]
  - Insomnia [Unknown]
